FAERS Safety Report 4986868-9 (Version None)
Quarter: 2006Q2

REPORT INFORMATION
  Report Type: 
  Country: None (occurrence: None)
  Receive Date: 20060428
  Receipt Date: 20060420
  Transmission Date: 20061013
  Serious: Yes (Disabling)
  Sender: FDA-Public Use
  Company Number: GB-ABBOTT-06P-167-0331306-00

PATIENT
  Age: 60 Year
  Sex: Female
  Weight: 101 kg

DRUGS (4)
  1. LIPANTIL MICRO CAPSULE [Suspect]
     Indication: HYPERCHOLESTEROLAEMIA
     Route: 048
     Dates: start: 20060302, end: 20060320
  2. ACETYLSALICYLIC ACID SRT [Concomitant]
     Indication: DRUG USE FOR UNKNOWN INDICATION
     Dates: start: 20050204
  3. METOPROLOL [Concomitant]
     Indication: DRUG USE FOR UNKNOWN INDICATION
     Dates: start: 20050204
  4. RAMIPRIL [Concomitant]
     Indication: DRUG USE FOR UNKNOWN INDICATION
     Dates: start: 20050204

REACTIONS (10)
  - ALANINE AMINOTRANSFERASE INCREASED [None]
  - BLOOD ALKALINE PHOSPHATASE INCREASED [None]
  - GINGIVAL BLEEDING [None]
  - INFLUENZA LIKE ILLNESS [None]
  - MOUTH HAEMORRHAGE [None]
  - NASAL DISCOMFORT [None]
  - RASH [None]
  - RECTAL HAEMORRHAGE [None]
  - TONGUE HAEMORRHAGE [None]
  - VAGINAL ERYTHEMA [None]
